FAERS Safety Report 7761149-9 (Version None)
Quarter: 2011Q3

REPORT INFORMATION
  Report Type: 
  Country: None (occurrence: None)
  Receive Date: 20110915
  Receipt Date: 20110830
  Transmission Date: 20111222
  Serious: Yes (Hospitalization, Other)
  Sender: FDA-Public Use
  Company Number: GER/ITL/11/0021047

PATIENT
  Age: 65 Year
  Sex: Male

DRUGS (2)
  1. ASPIRIN [Concomitant]
  2. CLOPIDOGREL [Suspect]
     Indication: ANTIPLATELET THERAPY
     Dosage: 75 MG, D

REACTIONS (8)
  - INFLAMMATION [None]
  - PYREXIA [None]
  - C-REACTIVE PROTEIN INCREASED [None]
  - DYSPNOEA [None]
  - LEUKOPENIA [None]
  - ANAEMIA [None]
  - NEUTROPENIA [None]
  - GRANULOCYTES MATURATION ARREST [None]
